FAERS Safety Report 23978351 (Version 1)
Quarter: 2024Q2

REPORT INFORMATION
  Report Type: Report from Study
  Country: US (occurrence: US)
  Receive Date: 20240614
  Receipt Date: 20240614
  Transmission Date: 20240716
  Serious: Yes (Hospitalization, Other)
  Sender: FDA-Public Use
  Company Number: US-SANDOZ-SDZ2024US057179

PATIENT
  Sex: Male
  Weight: 84.09 kg

DRUGS (1)
  1. TREPROSTINIL [Suspect]
     Active Substance: TREPROSTINIL
     Indication: Pulmonary arterial hypertension
     Dosage: 27 NG/KG/MIN
     Route: 058
     Dates: start: 20210729

REACTIONS (1)
  - Cataract [Unknown]
